FAERS Safety Report 25160442 (Version 1)
Quarter: 2025Q2

REPORT INFORMATION
  Report Type: Spontaneous
  Country: IT (occurrence: IT)
  Receive Date: 20250404
  Receipt Date: 20250404
  Transmission Date: 20250716
  Serious: Yes (Hospitalization, Other)
  Sender: GILEAD
  Company Number: IT-GILEAD-2025-0708999

PATIENT
  Age: 58 Year
  Sex: Male
  Weight: 66 kg

DRUGS (5)
  1. EPCLUSA [Suspect]
     Active Substance: SOFOSBUVIR\VELPATASVIR
     Indication: Chronic hepatitis C
     Route: 065
     Dates: start: 20200716, end: 20201010
  2. PAROXETINE [Concomitant]
     Active Substance: PAROXETINE
     Dosage: 20 MG, QD
  3. TEGRETOL [Concomitant]
     Active Substance: CARBAMAZEPINE
  4. CARVEDILOL [Concomitant]
     Active Substance: CARVEDILOL
     Dates: start: 20200708
  5. KEPPRA [Concomitant]
     Active Substance: LEVETIRACETAM

REACTIONS (10)
  - Respiratory failure [Unknown]
  - Rhabdomyolysis [Unknown]
  - Dyspnoea [Unknown]
  - Dehydration [Unknown]
  - Hypotension [Unknown]
  - Dystonia [Unknown]
  - Gastrointestinal tube insertion [Unknown]
  - Asthenia [Unknown]
  - Eating disorder [Unknown]
  - Depression [Unknown]
